FAERS Safety Report 4367645-9 (Version None)
Quarter: 2004Q2

REPORT INFORMATION
  Report Type: 
  Country: None (occurrence: None)
  Receive Date: 20040601
  Receipt Date: 20040227
  Transmission Date: 20050107
  Serious: Yes (Hospitalization, Disabling)
  Sender: FDA-Public Use
  Company Number: US-MERCK-0402USA02038

PATIENT
  Age: 53 Year
  Sex: Male
  Weight: 77 kg

DRUGS (4)
  1. ROXICET [Concomitant]
     Route: 065
     Dates: start: 20001104, end: 20030111
  2. PROSCAR [Concomitant]
     Route: 065
  3. ZANTAC [Concomitant]
     Route: 065
  4. VIOXX [Suspect]
     Indication: OSTEOARTHRITIS
     Route: 048
     Dates: start: 20010922, end: 20011203

REACTIONS (10)
  - ACUTE MYOCARDIAL INFARCTION [None]
  - ANXIETY [None]
  - BUNDLE BRANCH BLOCK RIGHT [None]
  - CORONARY ARTERY DISEASE [None]
  - CORONARY ARTERY OCCLUSION [None]
  - HERNIA [None]
  - HYPERTENSION [None]
  - HYPOKINESIA [None]
  - MYOCARDIAL INFARCTION [None]
  - PANIC DISORDER [None]
